FAERS Safety Report 6240796-X (Version None)
Quarter: 2009Q2

REPORT INFORMATION
  Report Type: 
  Country: None (occurrence: None)
  Receive Date: 20090623
  Receipt Date: 20090615
  Transmission Date: 20091009
  Serious: Yes (Congenital Anomaly)
  Sender: FDA-Public Use
  Company Number: DE-WYE-G03854509

PATIENT
  Sex: Female

DRUGS (3)
  1. TREVILOR RETARD [Suspect]
     Indication: DEPRESSION
     Route: 064
     Dates: end: 20080801
  2. TREVILOR RETARD [Suspect]
     Route: 064
     Dates: start: 20080801, end: 20080911
  3. TREVILOR RETARD [Suspect]
     Route: 048
     Dates: start: 20080912

REACTIONS (2)
  - CONGENITAL RENAL DISORDER [None]
  - FOETAL MACROSOMIA [None]
